FAERS Safety Report 8620849-9 (Version None)
Quarter: 2012Q3

REPORT INFORMATION
  Report Type: 
  Country: None (occurrence: None)
  Receive Date: 20120820
  Receipt Date: 20120820
  Transmission Date: 20120928
  Serious: Yes (Other)
  Sender: FDA-Public Use
  Company Number: None

PATIENT
  Age: 55 Year
  Sex: Male
  Weight: 113.3993 kg

DRUGS (1)
  1. CRESTOR [Suspect]
     Indication: BLOOD CHOLESTEROL INCREASED
     Dosage: ONE PER DAY, PO
     Route: 048
     Dates: start: 20110801, end: 20120710

REACTIONS (7)
  - MUSCULAR WEAKNESS [None]
  - ARTHRALGIA [None]
  - JOINT SWELLING [None]
  - MUSCULOSKELETAL PAIN [None]
  - JOINT INSTABILITY [None]
  - FATIGUE [None]
  - GAIT DISTURBANCE [None]
